FAERS Safety Report 11914051 (Version 3)
Quarter: 2016Q3

REPORT INFORMATION
  Report Type: Report from Study
  Country: CN (occurrence: CN)
  Receive Date: 20160113
  Receipt Date: 20160727
  Transmission Date: 20161109
  Serious: Yes (Hospitalization, Other)
  Sender: FDA-Public Use
  Company Number: CN-ASTELLAS-2016US001375

PATIENT
  Sex: Male

DRUGS (2)
  1. ERLOTINIB [Suspect]
     Active Substance: ERLOTINIB
     Route: 048
  2. ERLOTINIB [Suspect]
     Active Substance: ERLOTINIB
     Indication: NON-SMALL CELL LUNG CANCER
     Route: 048
     Dates: start: 20140920

REACTIONS (9)
  - Paralysis [Unknown]
  - Asthenia [Unknown]
  - Decreased appetite [Unknown]
  - Cardiac discomfort [Unknown]
  - Dermatitis allergic [Recovered/Resolved]
  - Cerebral thrombosis [Unknown]
  - Motion sickness [Unknown]
  - Vascular stenosis [Unknown]
  - Platelet count decreased [Unknown]
